FAERS Safety Report 7339239-4 (Version None)
Quarter: 2011Q1

REPORT INFORMATION
  Report Type: 
  Country: None (occurrence: None)
  Receive Date: 20110308
  Receipt Date: 20110225
  Transmission Date: 20110831
  Serious: Yes (Other)
  Sender: FDA-Public Use
  Company Number: US-JNJFOC-20110300420

PATIENT
  Sex: Female
  Weight: 70.31 kg

DRUGS (8)
  1. SIMPONI [Suspect]
     Indication: RHEUMATOID ARTHRITIS
     Route: 058
  2. SYNTHROID [Concomitant]
     Indication: HYPOTHYROIDISM
     Route: 048
  3. ARAVA [Concomitant]
     Indication: RHEUMATOID ARTHRITIS
     Route: 048
  4. SKELAXIN [Concomitant]
     Indication: PAIN
     Route: 048
  5. CYMBALTA [Concomitant]
     Indication: PAIN
     Route: 048
  6. PREMARIN [Concomitant]
     Indication: MENOPAUSE
     Dosage: 3 PILLS OF 0.625 MG
     Route: 048
  7. CYMBALTA [Concomitant]
     Indication: DEPRESSION
     Route: 048
  8. TORADOL [Concomitant]
     Indication: RHEUMATOID ARTHRITIS
     Route: 030

REACTIONS (4)
  - BRONCHITIS [None]
  - RHEUMATOID ARTHRITIS [None]
  - SINUSITIS [None]
  - EAR INFECTION [None]
